FAERS Safety Report 22621456 (Version 1)
Quarter: 2023Q2

REPORT INFORMATION
  Report Type: Other
  Country: DE (occurrence: None)
  Receive Date: 20230620
  Receipt Date: 20230620
  Transmission Date: 20230721
  Serious: Yes (Hospitalization)
  Sender: FDA-Public Use
  Company Number: DE-ROCHE-3222731

PATIENT
  Age: 20 Year
  Sex: Female
  Weight: 67 kg

DRUGS (8)
  1. OCRELIZUMAB [Suspect]
     Active Substance: OCRELIZUMAB
     Indication: Relapsing-remitting multiple sclerosis
     Dosage: START DATE IF LAST DOSE PRIOR TO THE LMP (LAST MENSTRUAL PERIOD): APR/2021
     Route: 065
     Dates: start: 202104
  2. OCRELIZUMAB [Suspect]
     Active Substance: OCRELIZUMAB
     Dosage: STOP DATE OF LAST DOSE PRIOR TO LMP (LAST MENSTRUAL PERIOD): 07/APR/2022
     Route: 065
     Dates: start: 20220407, end: 20220407
  3. FEMIBION [Concomitant]
     Dates: start: 202206, end: 20220904
  4. FOLIO FORTE PHASE 1 [Concomitant]
     Dates: start: 20220904, end: 20221023
  5. CORTISONE [Concomitant]
     Active Substance: CORTISONE
     Dates: start: 20220407, end: 20220407
  6. ACETAMINOPHEN [Concomitant]
     Active Substance: ACETAMINOPHEN
     Dates: start: 20220407, end: 20220407
  7. CLEMASTINE FUMARATE [Concomitant]
     Active Substance: CLEMASTINE FUMARATE
     Dates: start: 20220407, end: 20220407
  8. COMIRNATY [Concomitant]
     Active Substance: TOZINAMERAN
     Dates: start: 20221123

REACTIONS (2)
  - Urinary tract infection [Recovered/Resolved]
  - Maternal exposure before pregnancy [Unknown]

NARRATIVE: CASE EVENT DATE: 20230227
